FAERS Safety Report 23237778 (Version 1)
Quarter: 2023Q4

REPORT INFORMATION
  Report Type: Spontaneous
  Country: IT (occurrence: IT)
  Receive Date: 20231128
  Receipt Date: 20231128
  Transmission Date: 20240109
  Serious: Yes (Hospitalization)
  Sender: FDA-Public Use
  Company Number: None

PATIENT
  Age: 50 Year
  Sex: Female

DRUGS (1)
  1. AZACITIDINE [Suspect]
     Active Substance: AZACITIDINE
     Indication: Acute myeloid leukaemia
     Dosage: 75 MG/M2/DAY, (FROM DAY 1 TO DAY 7)
     Dates: start: 20230808, end: 20230814

REACTIONS (1)
  - Injection site injury [Recovered/Resolved]

NARRATIVE: CASE EVENT DATE: 20230809
